FAERS Safety Report 23645738 (Version 3)
Quarter: 2024Q2

REPORT INFORMATION
  Report Type: Spontaneous
  Country: DE (occurrence: DE)
  Receive Date: 20240319
  Receipt Date: 20240628
  Transmission Date: 20240717
  Serious: Yes (Other)
  Sender: FDA-Public Use
  Company Number: DE-JNJFOC-20240328843

PATIENT
  Age: 19 Year
  Sex: Male

DRUGS (4)
  1. STELARA [Suspect]
     Active Substance: USTEKINUMAB
     Indication: Colitis ulcerative
     Route: 040
     Dates: start: 20231020
  2. STELARA [Suspect]
     Active Substance: USTEKINUMAB
     Route: 058
     Dates: start: 202312, end: 20231213
  3. URSODEOXYCHOL [Concomitant]
     Indication: Cholangitis sclerosing
  4. FOLIC ACID [Concomitant]
     Active Substance: FOLIC ACID
     Indication: Folate deficiency

REACTIONS (2)
  - Pneumonia [Unknown]
  - Sarcoid-like reaction [Unknown]

NARRATIVE: CASE EVENT DATE: 20230101
